FAERS Safety Report 14399224 (Version 3)
Quarter: 2018Q1

REPORT INFORMATION
  Report Type: Spontaneous
  Country: US (occurrence: US)
  Receive Date: 20180117
  Receipt Date: 20180225
  Transmission Date: 20180509
  Serious: No
  Sender: FDA-Public Use
  Company Number: US-JNJFOC-20180108938

PATIENT
  Sex: Male

DRUGS (1)
  1. ZYTIGA [Suspect]
     Active Substance: ABIRATERONE ACETATE
     Indication: PRODUCT USED FOR UNKNOWN INDICATION
     Dosage: TAKE 4 TABLETS BY??MOUTH ONCE DAILY??AS DIRECTED. TAKE 1??HOUR BEFORE OR 2??HOURS AFTER A??MEAL.
     Route: 048
     Dates: start: 20171012

REACTIONS (3)
  - Malaise [Unknown]
  - Asthenia [Unknown]
  - Drug dose omission [Unknown]
